FAERS Safety Report 7366322-X (Version None)
Quarter: 2011Q1

REPORT INFORMATION
  Report Type: 
  Country: None (occurrence: None)
  Receive Date: 20110322
  Receipt Date: 20110316
  Transmission Date: 20110831
  Serious: Yes (Life-Threatening, Hospitalization)
  Sender: FDA-Public Use
  Company Number: DE-SANOFI-AVENTIS-2011SA016050

PATIENT
  Age: 69 Year
  Sex: Male

DRUGS (3)
  1. SOLU-DECORTIN-H [Concomitant]
     Route: 042
     Dates: start: 20100930
  2. THEOPHYLLINE [Suspect]
     Route: 042
     Dates: start: 20100930, end: 20100930
  3. MULTAQ [Suspect]
     Indication: EXTRASYSTOLES
     Route: 048
     Dates: start: 20100301

REACTIONS (9)
  - VENTRICULAR FIBRILLATION [None]
  - ELECTROCARDIOGRAM ABNORMAL [None]
  - LOSS OF CONSCIOUSNESS [None]
  - VENTRICULAR EXTRASYSTOLES [None]
  - ELECTROCARDIOGRAM QT PROLONGED [None]
  - TORSADE DE POINTES [None]
  - OFF LABEL USE [None]
  - ATRIAL FIBRILLATION [None]
  - HYPOKALAEMIA [None]
